FAERS Safety Report 6699568-4 (Version None)
Quarter: 2010Q2

REPORT INFORMATION
  Report Type: 
  Country: None (occurrence: None)
  Receive Date: 20100427
  Receipt Date: 20100427
  Transmission Date: 20101027
  Serious: Yes (Other)
  Sender: FDA-Public Use
  Company Number: None

PATIENT
  Age: 1 Day
  Sex: Male
  Weight: 2.74 kg

DRUGS (2)
  1. MILRINONE LACTATE [Suspect]
     Indication: HYPOTENSION
     Dosage: 75 MCG/KG ONCE IV BOLUS
     Route: 040
     Dates: start: 20100407, end: 20100407
  2. MILRINONE LACTATE [Suspect]
     Indication: HYPOTENSION
     Dosage: 0.5 MCG/KG PER HOUR IV DRIP
     Route: 041

REACTIONS (1)
  - PYREXIA [None]
